FAERS Safety Report 9315313 (Version 1)
Quarter: 2013Q2

REPORT INFORMATION
  Report Type: Spontaneous
  Country: US (occurrence: US)
  Receive Date: 20130529
  Receipt Date: 20130529
  Transmission Date: 20140414
  Serious: No
  Sender: FDA-Public Use
  Company Number: US-ASTRAZENECA-2013SE35310

PATIENT
  Age: 84 Year
  Sex: Female

DRUGS (5)
  1. NEXIUM [Suspect]
     Indication: GASTROOESOPHAGEAL REFLUX DISEASE
     Route: 048
     Dates: start: 20130414
  2. BRILINTA [Suspect]
     Indication: MYOCARDIAL INFARCTION
     Route: 048
     Dates: start: 20130414
  3. COREG [Concomitant]
  4. DIOVAN [Concomitant]
  5. BABY ASPIRIN [Concomitant]
     Dosage: DAILY

REACTIONS (4)
  - Hypoaesthesia [Unknown]
  - Dyspnoea [Unknown]
  - Epistaxis [Unknown]
  - Muscular weakness [Unknown]
